FAERS Safety Report 4389912-5 (Version None)
Quarter: 2004Q2

REPORT INFORMATION
  Report Type: 
  Country: None (occurrence: None)
  Receive Date: 20040630
  Receipt Date: 20040615
  Transmission Date: 20050107
  Serious: No
  Sender: FDA-Public Use
  Company Number: 2004AP03213

PATIENT
  Age: 68 Year
  Sex: Female
  Weight: 49 kg

DRUGS (5)
  1. OMEPRAL [Suspect]
     Dosage: 20 MG DAILY PO
     Route: 048
     Dates: start: 20030902, end: 20031021
  2. OMEPRAL [Suspect]
     Dosage: 10 MG DAILY, PO
     Route: 048
     Dates: start: 20031101
  3. KARY UNI [Concomitant]
  4. RIZABEN [Concomitant]
  5. GASMOTIN [Concomitant]

REACTIONS (3)
  - ARTERIOSCLEROSIS [None]
  - RETINAL HAEMORRHAGE [None]
  - RETINAL VEIN OCCLUSION [None]
